FAERS Safety Report 4744822-6 (Version None)
Quarter: 2005Q3

REPORT INFORMATION
  Report Type: 
  Country: None (occurrence: None)
  Receive Date: 20050815
  Receipt Date: 20050408
  Transmission Date: 20060218
  Serious: Yes (Other)
  Sender: FDA-Public Use
  Company Number: US-GLAXOSMITHKLINE-A0553401A

PATIENT
  Age: 51 Year
  Sex: Female

DRUGS (4)
  1. WELLBUTRIN [Suspect]
     Indication: DEPRESSION
     Route: 048
  2. EFFEXOR XR [Concomitant]
     Dosage: 300MG IN THE MORNING
     Route: 048
  3. REMERON [Concomitant]
     Dosage: 45MG AT NIGHT
     Route: 048
  4. PREMARIN [Concomitant]
     Dosage: .125MG UNKNOWN
     Route: 065

REACTIONS (7)
  - EXCORIATION [None]
  - FALL [None]
  - GRAND MAL CONVULSION [None]
  - HAND FRACTURE [None]
  - MYALGIA [None]
  - PAIN IN EXTREMITY [None]
  - PERIORBITAL HAEMATOMA [None]
